FAERS Safety Report 6426948-4 (Version None)
Quarter: 2009Q4

REPORT INFORMATION
  Report Type: 
  Country: None (occurrence: None)
  Receive Date: 20091103
  Receipt Date: 20091103
  Transmission Date: 20100525
  Serious: Yes (Other)
  Sender: FDA-Public Use
  Company Number: None

PATIENT
  Age: 57 Year
  Sex: Female
  Weight: 68.0396 kg

DRUGS (6)
  1. BENGAY MOIST HEAT THERAPY (NO ACTIVE INGREDIENT) 1 PATCH ONCE FOR 5 HO [Suspect]
     Indication: MUSCLE SPASMS
     Dosage: 1 PATCH ONCE FOR 5 HOURS (1 IN 1 TOTAL), TOPICAL
     Route: 061
     Dates: start: 20090916, end: 20090916
  2. PREMARIN [Concomitant]
  3. NEXIUM [Concomitant]
  4. VITAMINS [Concomitant]
  5. CARAFATE [Concomitant]
  6. PRAVACHOL [Concomitant]

REACTIONS (5)
  - BLISTER [None]
  - CHEMICAL BURN OF SKIN [None]
  - EXCORIATION [None]
  - SKIN EXFOLIATION [None]
  - WOUND [None]
